FAERS Safety Report 21883361 (Version 2)
Quarter: 2023Q1

REPORT INFORMATION
  Report Type: Report from Study
  Country: US (occurrence: US)
  Receive Date: 20230119
  Receipt Date: 20230120
  Transmission Date: 20230417
  Serious: Yes (Other)
  Sender: FDA-Public Use
  Company Number: US-Accord-269673

PATIENT
  Age: 60 Year
  Sex: Female
  Weight: 63.2 kg

DRUGS (10)
  1. CLOZAPINE [Suspect]
     Active Substance: CLOZAPINE
     Indication: Schizophrenia
     Dosage: 450MG, DAILY
     Route: 048
     Dates: start: 20220629, end: 20220708
  2. DEPAKOTE [Concomitant]
     Active Substance: DIVALPROEX SODIUM
     Indication: Schizoaffective disorder
     Route: 048
     Dates: start: 20210902
  3. HALDOL [Concomitant]
     Active Substance: HALOPERIDOL
     Indication: Schizoaffective disorder
     Route: 048
     Dates: start: 20220607
  4. ZYPREXA [Concomitant]
     Active Substance: OLANZAPINE
     Indication: Schizoaffective disorder
     Route: 048
     Dates: start: 20220606, end: 20220613
  5. LITHIUM [Concomitant]
     Active Substance: LITHIUM
     Indication: Neutrophil count increased
     Route: 048
     Dates: start: 20220602
  6. CLONAZEPAM [Concomitant]
     Active Substance: CLONAZEPAM
  7. COGENTIN [Concomitant]
     Active Substance: BENZTROPINE MESYLATE
     Dosage: BID
  8. METFORMIN [Concomitant]
     Active Substance: METFORMIN HYDROCHLORIDE
  9. LEVOTHYROXINE [Concomitant]
     Active Substance: LEVOTHYROXINE
  10. MIDODRINE [Concomitant]
     Active Substance: MIDODRINE

REACTIONS (2)
  - Neutropenia [Recovered/Resolved]
  - Urinary tract infection [Recovered/Resolved]

NARRATIVE: CASE EVENT DATE: 20220706
